FAERS Safety Report 6470375-0 (Version None)
Quarter: 2009Q4

REPORT INFORMATION
  Report Type: 
  Country: None (occurrence: None)
  Receive Date: 20091203
  Receipt Date: 20091126
  Transmission Date: 20100525
  Serious: Yes (Life-Threatening, Hospitalization, Other)
  Sender: FDA-Public Use
  Company Number: DE-PFIZER INC-2009295184

PATIENT
  Age: 57 Year
  Sex: Female
  Weight: 64 kg

DRUGS (1)
  1. SUTENT [Suspect]
     Indication: RENAL CELL CARCINOMA
     Dosage: 50 MG, 1X/DAY
     Route: 048
     Dates: start: 20090930, end: 20091027

REACTIONS (7)
  - ATELECTASIS [None]
  - DIARRHOEA [None]
  - INTESTINAL PERFORATION [None]
  - NO THERAPEUTIC RESPONSE [None]
  - PERITONITIS [None]
  - PLEURAL EFFUSION [None]
  - VOMITING [None]
